FAERS Safety Report 4689808-5 (Version None)
Quarter: 2005Q2

REPORT INFORMATION
  Report Type: 
  Country: None (occurrence: None)
  Receive Date: 20050608
  Receipt Date: 20050412
  Transmission Date: 20051028
  Serious: No
  Sender: FDA-Public Use
  Company Number: 2005-BP-06023BP

PATIENT
  Sex: Male

DRUGS (15)
  1. SPIRIVA [Suspect]
     Indication: CHRONIC OBSTRUCTIVE PULMONARY DISEASE
     Dosage: 18 MCG (18 MCG, QD), IH
     Route: 055
     Dates: start: 20040801
  2. SPIRIVA [Suspect]
  3. ALBUTEROL [Concomitant]
  4. FLOVENT [Concomitant]
  5. COZAAR [Concomitant]
  6. ZYLOPRIM [Concomitant]
  7. SINGULAIR(MONTELUKAST) [Concomitant]
  8. ACETYLSALICYLIC ACID SRT [Concomitant]
  9. CATAPRES-TTS-1 [Concomitant]
  10. ALLEGRA [Concomitant]
  11. LASIX [Concomitant]
  12. CORGARD [Concomitant]
  13. LIPITOR [Concomitant]
  14. CANTIL(MEPENZOLATE BROMIDE) [Concomitant]
  15. PREVACID [Concomitant]

REACTIONS (1)
  - DYSPNOEA [None]
